FAERS Safety Report 21212644 (Version 1)
Quarter: 2022Q3

REPORT INFORMATION
  Report Type: Spontaneous
  Country: US (occurrence: None)
  Receive Date: 20220814
  Receipt Date: 20220814
  Transmission Date: 20221027
  Serious: Yes (Disabling)
  Sender: FDA-Public Use
  Company Number: None

PATIENT
  Age: 68 Year
  Sex: Male
  Weight: 81.72 kg

DRUGS (10)
  1. DILTIAZEM HYDROCHLORIDE [Suspect]
     Active Substance: DILTIAZEM HYDROCHLORIDE
     Indication: Hypertension
     Dosage: OTHER QUANTITY : 1 CAPSULE(S);?FREQUENCY : DAILY;?
     Route: 048
     Dates: start: 20211011, end: 20220807
  2. VALSARTAN [Concomitant]
     Active Substance: VALSARTAN
  3. ALBUTEROL SULFATE [Concomitant]
     Active Substance: ALBUTEROL SULFATE
  4. EZETIMIBE [Concomitant]
     Active Substance: EZETIMIBE
  5. ALPRAZOLAM [Concomitant]
     Active Substance: ALPRAZOLAM
  6. MAGNESIUM OXIDE [Concomitant]
     Active Substance: MAGNESIUM OXIDE
  7. VITAMIN D3 [Concomitant]
     Active Substance: CHOLECALCIFEROL
  8. OMEPRAZOLE [Concomitant]
     Active Substance: OMEPRAZOLE
  9. LORATADINE [Concomitant]
     Active Substance: LORATADINE
  10. ASPIRIN [Concomitant]
     Active Substance: ASPIRIN

REACTIONS (3)
  - Constipation [None]
  - Gastrointestinal pain [None]
  - Joint swelling [None]

NARRATIVE: CASE EVENT DATE: 20220308
